FAERS Safety Report 15135983 (Version 1)
Quarter: 2018Q3

REPORT INFORMATION
  Report Type: Report from Study
  Country: US (occurrence: US)
  Receive Date: 20180712
  Receipt Date: 20180712
  Transmission Date: 20181010
  Serious: Yes (Other)
  Sender: FDA-Public Use
  Company Number: US-SA-200716788US

PATIENT
  Age: 86 Year
  Sex: Male

DRUGS (5)
  1. INSULIN GLARGINE [Suspect]
     Active Substance: INSULIN GLARGINE
     Dosage: 11 DF,QD
     Route: 051
  2. INSULIN GLARGINE [Suspect]
     Active Substance: INSULIN GLARGINE
     Indication: TYPE 2 DIABETES MELLITUS
     Dosage: 30 DF,QD
     Route: 051
  3. INSULIN GLARGINE [Suspect]
     Active Substance: INSULIN GLARGINE
     Dosage: 60 DF,QD
     Route: 058
     Dates: start: 2013
  4. INSULIN GLARGINE [Suspect]
     Active Substance: INSULIN GLARGINE
     Dosage: 40 U, QD
     Route: 065
  5. GLIPIZIDE. [Concomitant]
     Active Substance: GLIPIZIDE
     Dosage: DOSE AS USED: UNK
     Route: 065

REACTIONS (3)
  - Atrial fibrillation [Unknown]
  - Inability to afford medication [Unknown]
  - Blood glucose increased [Recovered/Resolved]
